FAERS Safety Report 6788648-0 (Version None)
Quarter: 2010Q2

REPORT INFORMATION
  Report Type: 
  Country: None (occurrence: None)
  Receive Date: 20100623
  Receipt Date: 20080428
  Transmission Date: 20101027
  Serious: No
  Sender: FDA-Public Use
  Company Number: US-PFIZER INC-2008037288

PATIENT
  Sex: Female
  Weight: 75.9 kg

DRUGS (5)
  1. SUTENT [Suspect]
     Indication: LUNG NEOPLASM MALIGNANT
     Dates: start: 20080328
  2. SUTENT [Suspect]
     Indication: RENAL CANCER
  3. METOPROLOL TARTRATE [Concomitant]
  4. LISINOPRIL [Concomitant]
  5. CLONIDINE [Concomitant]

REACTIONS (1)
  - DIARRHOEA [None]
